FAERS Safety Report 7795821-1 (Version None)
Quarter: 2011Q4

REPORT INFORMATION
  Report Type: 
  Country: None (occurrence: None)
  Receive Date: 20111004
  Receipt Date: 20110922
  Transmission Date: 20120403
  Serious: Yes (Other)
  Sender: FDA-Public Use
  Company Number: US-ELI_LILLY_AND_COMPANY-US201109007268

PATIENT
  Sex: Female

DRUGS (5)
  1. FORTEO [Suspect]
     Indication: OSTEOPOROSIS
     Dosage: 20 UG, QD
     Dates: start: 20100501
  2. HIZAAR [Concomitant]
  3. NORVASC [Concomitant]
  4. TYLENOL                                 /SCH/ [Concomitant]
  5. METHOTREXATE [Concomitant]

REACTIONS (3)
  - HIP ARTHROPLASTY [None]
  - MEDICATION ERROR [None]
  - INCORRECT STORAGE OF DRUG [None]
